FAERS Safety Report 19476760 (Version 1)
Quarter: 2021Q2

REPORT INFORMATION
  Report Type: Spontaneous
  Country: US (occurrence: US)
  Receive Date: 20210630
  Receipt Date: 20210630
  Transmission Date: 20210717
  Serious: No
  Sender: FDA-Public Use
  Company Number: US-009507513-2106USA007198

PATIENT
  Age: 28 Year
  Sex: Male

DRUGS (9)
  1. NIVOLUMAB [Concomitant]
     Active Substance: NIVOLUMAB
     Indication: METASTASES TO MENINGES
  2. BEVACIZUMAB. [Concomitant]
     Active Substance: BEVACIZUMAB
     Indication: GLIOBLASTOMA
  3. TEMODAR [Suspect]
     Active Substance: TEMOZOLOMIDE
     Indication: GLIOBLASTOMA MULTIFORME
     Route: 048
  4. TEMODAR [Suspect]
     Active Substance: TEMOZOLOMIDE
     Indication: METASTASES TO BONE
  5. BEVACIZUMAB. [Concomitant]
     Active Substance: BEVACIZUMAB
     Indication: METASTASES TO MENINGES
  6. CARBOPLATIN. [Concomitant]
     Active Substance: CARBOPLATIN
  7. NIVOLUMAB [Concomitant]
     Active Substance: NIVOLUMAB
     Indication: GLIOBLASTOMA
  8. LOMUSTINE. [Concomitant]
     Active Substance: LOMUSTINE
  9. ETOPOSIDE. [Concomitant]
     Active Substance: ETOPOSIDE

REACTIONS (1)
  - Product use in unapproved indication [Unknown]
